FAERS Safety Report 7903012-6 (Version None)
Quarter: 2011Q4

REPORT INFORMATION
  Report Type: 
  Country: None (occurrence: None)
  Receive Date: 20111103
  Receipt Date: 20111020
  Transmission Date: 20120403
  Serious: Yes (Other)
  Sender: FDA-Public Use
  Company Number: 2011SP050022

PATIENT
  Age: 90 Year
  Sex: Female

DRUGS (1)
  1. DESLORATADINE [Suspect]
     Indication: EYE PRURITUS
     Dates: start: 20110901, end: 20111001

REACTIONS (1)
  - ANURIA [None]
